FAERS Safety Report 8632791 (Version 2)
Quarter: 2012Q4

REPORT INFORMATION
  Report Type: 
  Country: FR (occurrence: FR)
  Receive Date: 20120625
  Receipt Date: 20121218
  Transmission Date: 20130627
  Serious: Yes (Hospitalization)
  Sender: FDA-Public Use
  Company Number: FR-ROCHE-1080859

PATIENT
  Age: 43 Year
  Sex: Male

DRUGS (5)
  1. PEGASYS [Suspect]
     Indication: HEPATITIS C
     Route: 058
     Dates: start: 20111124, end: 20120502
  2. COPEGUS [Suspect]
     Indication: HEPATITIS C
     Route: 048
     Dates: start: 20111124, end: 20120502
  3. INCIVO [Concomitant]
     Route: 048
     Dates: start: 20111124, end: 20120223
  4. TRUVADA [Concomitant]
  5. ISENTRESS [Concomitant]

REACTIONS (2)
  - Stomatitis [Recovered/Resolved]
  - Abnormal loss of weight [Recovered/Resolved]
